FAERS Safety Report 8091520-X (Version None)
Quarter: 2012Q1

REPORT INFORMATION
  Report Type: 
  Country: None (occurrence: None)
  Receive Date: 20120129
  Receipt Date: 20110909
  Transmission Date: 20120608
  Serious: No
  Sender: FDA-Public Use
  Company Number: US-ABBOTT-11P-163-0853547-00

PATIENT
  Age: 32 Year
  Sex: Male

DRUGS (6)
  1. HUMIRA [Suspect]
  2. PROTONIX [Concomitant]
     Indication: HYPERCHLORHYDRIA
  3. AVELOX [Concomitant]
     Indication: CROHN'S DISEASE
  4. MERCAPTOPURINE [Concomitant]
     Indication: CROHN'S DISEASE
  5. ALLOPURINOL [Concomitant]
     Indication: GLUCOSE-6-PHOSPHATE DEHYDROGENASE ABNORMAL
  6. HUMIRA [Suspect]
     Indication: CROHN'S DISEASE
     Dates: start: 20110401

REACTIONS (3)
  - MALAISE [None]
  - INJECTION SITE PAPULE [None]
  - INJECTION SITE RASH [None]
